FAERS Safety Report 8794986 (Version 1)
Quarter: 2012Q4

REPORT INFORMATION
  Report Type: 
  Country: US (occurrence: US)
  Receive Date: 20120917
  Receipt Date: 20120917
  Transmission Date: 20130627
  Serious: Yes (Other)
  Sender: FDA-Public Use
  Company Number: US-PFIZER INC-2012228423

PATIENT
  Age: 58 Year
  Sex: Male
  Weight: 80.27 kg

DRUGS (3)
  1. LYRICA [Suspect]
     Indication: PAIN
     Dosage: 50 mg, daily
     Route: 048
     Dates: start: 20120913
  2. BYSTOLIC [Concomitant]
     Indication: HYPERTENSION
     Dosage: 10 mg, daily
  3. ZITHROMAX [Concomitant]
     Indication: BRONCHITIS
     Dosage: 250 mg, daily

REACTIONS (3)
  - Activities of daily living impaired [Recovered/Resolved]
  - Asthenia [Recovered/Resolved]
  - Muscular weakness [Recovered/Resolved]
